FAERS Safety Report 22228621 (Version 1)
Quarter: 2023Q2

REPORT INFORMATION
  Report Type: Spontaneous
  Country: CN (occurrence: CN)
  Receive Date: 20230419
  Receipt Date: 20230419
  Transmission Date: 20230721
  Serious: Yes (Hospitalization)
  Sender: FDA-Public Use
  Company Number: CN-PFIZER INC-PV202300070256

PATIENT
  Age: 95 Year
  Sex: Male

DRUGS (2)
  1. TYGACIL [Suspect]
     Active Substance: TIGECYCLINE
     Indication: Cerebral infarction
     Dosage: Q12H
     Route: 041
     Dates: start: 20230403, end: 20230410
  2. TYGACIL [Suspect]
     Active Substance: TIGECYCLINE
     Indication: Pneumonia

REACTIONS (3)
  - Coagulation factor decreased [Recovering/Resolving]
  - Blood fibrinogen decreased [Recovering/Resolving]
  - Haematuria [Unknown]

NARRATIVE: CASE EVENT DATE: 20230401
